FAERS Safety Report 14179714 (Version 3)
Quarter: 2018Q2

REPORT INFORMATION
  Report Type: Report from Study
  Country: DE (occurrence: DE)
  Receive Date: 20171110
  Receipt Date: 20180511
  Transmission Date: 20180711
  Serious: Yes (Life-Threatening, Hospitalization, Disabling, Other)
  Sender: FDA-Public Use
  Company Number: PHHY2017DE166253

PATIENT
  Age: 88 Year
  Sex: Female
  Weight: 82 kg

DRUGS (9)
  1. AMOROLFINE [Concomitant]
     Active Substance: AMOROLFINE
     Indication: PRODUCT USED FOR UNKNOWN INDICATION
     Route: 065
  2. ENTRESTO [Suspect]
     Active Substance: SACUBITRIL\VALSARTAN
     Indication: CARDIAC FAILURE CHRONIC
     Dosage: 1 DF (24 MG SACUBITRIL, 26 MG VALSARTAN), BID
     Route: 048
     Dates: start: 20160829, end: 20170823
  3. XARELTO [Concomitant]
     Active Substance: RIVAROXABAN
     Indication: PERIPHERAL ARTERY OCCLUSION
     Dosage: 1 DF, QD
     Route: 048
     Dates: start: 2015, end: 20170823
  4. TORASEMIDE [Concomitant]
     Active Substance: TORSEMIDE
     Indication: PRODUCT USED FOR UNKNOWN INDICATION
     Dosage: 1 DF, QD
     Route: 048
     Dates: start: 2010, end: 20170823
  5. EDOXABAN [Concomitant]
     Active Substance: EDOXABAN TOSYLATE
     Indication: ATRIAL FIBRILLATION
     Dosage: 1 DF, QD
     Route: 065
  6. VITAMIN B12 [Concomitant]
     Active Substance: CYANOCOBALAMIN
     Indication: PRODUCT USED FOR UNKNOWN INDICATION
     Dosage: 1000 UG, EVERY 6 WEEKS
     Route: 065
  7. PANTOPRAZOLE [Concomitant]
     Active Substance: PANTOPRAZOLE
     Indication: PRODUCT USED FOR UNKNOWN INDICATION
     Dosage: 1 DF, QD
     Route: 048
     Dates: start: 2010, end: 20170823
  8. ALLOPURINOL. [Concomitant]
     Active Substance: ALLOPURINOL
     Indication: PRODUCT USED FOR UNKNOWN INDICATION
     Dosage: 1 DF, QD
     Route: 065
  9. ENTRESTO [Suspect]
     Active Substance: SACUBITRIL\VALSARTAN
     Dosage: 1 DF (24 MG SACUBITRIL, 26 MG VALSARTAN), BID
     Route: 048
     Dates: start: 20160829

REACTIONS (62)
  - Leukoencephalopathy [Unknown]
  - Social avoidant behaviour [Unknown]
  - Asthenia [Unknown]
  - Metamyelocyte percentage increased [Unknown]
  - Partial seizures [Unknown]
  - Contusion [Unknown]
  - Sinusitis [Unknown]
  - Hallucination [Unknown]
  - Anhedonia [Unknown]
  - Dementia [Unknown]
  - Joint injury [Unknown]
  - Psychomotor retardation [Unknown]
  - Epilepsy [Not Recovered/Not Resolved]
  - Urinary tract infection [Unknown]
  - Pericardial effusion [Unknown]
  - Body temperature increased [Unknown]
  - Urinary incontinence [Unknown]
  - Pleural effusion [Unknown]
  - Hyperuricaemia [Unknown]
  - Vascular encephalopathy [Not Recovered/Not Resolved]
  - Aphasia [Unknown]
  - Decreased interest [Unknown]
  - Cerebral infarction [Recovering/Resolving]
  - Peripheral artery occlusion [Unknown]
  - Urosepsis [Unknown]
  - Fall [Recovered/Resolved]
  - Proteus test positive [Unknown]
  - Aortic arteriosclerosis [Unknown]
  - General physical health deterioration [Unknown]
  - Red blood cell count decreased [Unknown]
  - Decreased appetite [Unknown]
  - Hemiplegia [Unknown]
  - Cerebral atrophy [Unknown]
  - Renal failure [Unknown]
  - Skin abrasion [Unknown]
  - Arteriosclerosis [Unknown]
  - Haematoma [Unknown]
  - Lung infiltration [Unknown]
  - Neutrophil count increased [Unknown]
  - Myocardial infarction [Recovering/Resolving]
  - Septic encephalopathy [Unknown]
  - Blood catecholamines increased [Unknown]
  - Vitamin B12 deficiency [Unknown]
  - Musculoskeletal discomfort [Unknown]
  - Haemoglobin decreased [Unknown]
  - Haematocrit decreased [Unknown]
  - Apraxia [Unknown]
  - Cerebral ischaemia [Not Recovered/Not Resolved]
  - Leukopenia [Unknown]
  - Hypokalaemia [Unknown]
  - Nitrite urine present [Unknown]
  - Tongue dry [Unknown]
  - Hyporesponsive to stimuli [Unknown]
  - Escherichia infection [Unknown]
  - Osteochondrosis [Unknown]
  - Onychomycosis [Unknown]
  - Anal incontinence [Unknown]
  - Weight decreased [Unknown]
  - Skin turgor decreased [Unknown]
  - Gastrooesophageal reflux disease [Unknown]
  - Hyponatraemia [Unknown]
  - Dermatophytosis [Unknown]

NARRATIVE: CASE EVENT DATE: 201612
